FAERS Safety Report 15974482 (Version 1)
Quarter: 2019Q1

REPORT INFORMATION
  Report Type: Spontaneous
  Country: GB (occurrence: GB)
  Receive Date: 20190218
  Receipt Date: 20190218
  Transmission Date: 20190418
  Serious: Yes (Disabling)
  Sender: FDA-Public Use
  Company Number: GB-SA-2019SA039890

PATIENT
  Age: 64 Year
  Sex: Male
  Weight: 124 kg

DRUGS (21)
  1. INDAPAMIDE. [Suspect]
     Active Substance: INDAPAMIDE
     Dosage: MORNING
     Dates: start: 20190121
  2. ATORVASTATIN [Concomitant]
     Active Substance: ATORVASTATIN
     Dosage: 1 DF, QD
     Dates: start: 20180427
  3. MACROBID [Concomitant]
     Active Substance: NITROFURANTOIN\NITROFURANTOIN MONOHYDRATE
     Dosage: 2 DF, QD
     Dates: start: 20181205, end: 20181212
  4. LOSARTAN. [Concomitant]
     Active Substance: LOSARTAN
     Dosage: 1 DF, QD
     Dates: start: 20180427
  5. PARACETAMOL [Concomitant]
     Active Substance: ACETAMINOPHEN
     Dosage: UNK UNK, PRN (TAKE 1-2 FOUR TIMES A DAY)
     Dates: start: 20180608
  6. OLANZAPINE. [Concomitant]
     Active Substance: OLANZAPINE
     Dosage: 1 DF, QD
     Dates: start: 20180427
  7. IBUPROFEN. [Concomitant]
     Active Substance: IBUPROFEN
     Indication: ANTIINFLAMMATORY THERAPY
     Dosage: 1 DF (UPTO 3 TIMES/DAY)
     Dates: start: 20180608, end: 20190109
  8. CASSIA SENNA [Concomitant]
     Active Substance: HERBALS\SENNOSIDES
     Dosage: UNK (TAKE 1 OR 2 AT NIGHT)
     Dates: start: 20180427
  9. OMEPRAZOLE. [Concomitant]
     Active Substance: OMEPRAZOLE
     Dosage: 1 DF, QD
     Dates: start: 20180427
  10. BECONASE AQ [Concomitant]
     Active Substance: BECLOMETHASONE DIPROPIONATE MONOHYDRATE
     Dosage: UNK (ONE TO TWO SPRAYS IN TO EACH NOSTRIL TWICE A DAY)
     Route: 045
     Dates: start: 20181212, end: 20190109
  11. GLYCERYL TRINITRATE [Concomitant]
     Active Substance: NITROGLYCERIN
     Dosage: UNK UNK, PRN (1-2 PUFFS)
     Route: 060
     Dates: start: 20180427
  12. LACTULOSE. [Concomitant]
     Active Substance: LACTULOSE
     Dosage: UNK UNK, BID (10-20ML TWICE DAILY)
     Dates: start: 20180427
  13. TRIMETHOPRIM. [Concomitant]
     Active Substance: TRIMETHOPRIM
     Dosage: 2 DF, QD
     Dates: start: 20181206, end: 20181209
  14. CAPASAL [Concomitant]
     Dosage: UNK UNK, PRN (EVERY DAY)
     Route: 061
     Dates: start: 20180427
  15. CITALOPRAM [Concomitant]
     Active Substance: CITALOPRAM HYDROBROMIDE
     Dosage: 1 DF, QD
     Dates: start: 20180427
  16. ADIZEM [Concomitant]
     Active Substance: DILTIAZEM HYDROCHLORIDE
     Dosage: 1 DF, QD
     Dates: start: 20181025
  17. TRAMADOL. [Concomitant]
     Active Substance: TRAMADOL
     Dosage: UNK (TAKE 1 OR 2 EVERY 6 HOURS)
     Dates: start: 20181025, end: 20181026
  18. AMLODIPINE [Concomitant]
     Active Substance: AMLODIPINE BESYLATE
     Dosage: 1 DF, QD
     Dates: start: 20180427, end: 20181025
  19. NITRAZEPAM [Concomitant]
     Active Substance: NITRAZEPAM
     Dosage: 2 DF, HS
     Dates: start: 20180427
  20. ACETYLSALICYLIC ACID [Concomitant]
     Active Substance: ASPIRIN
     Dosage: 1 DF, QD
     Dates: start: 20180427
  21. NITROFURANTOIN. [Concomitant]
     Active Substance: NITROFURANTOIN
     Indication: INFECTION
     Dosage: 2 DF, QD (FOR 7 DAYS)
     Dates: start: 20181119, end: 20181126

REACTIONS (2)
  - Bone pain [Recovering/Resolving]
  - Headache [Recovering/Resolving]
